FAERS Safety Report 9001039 (Version 1)
Quarter: 2013Q1

REPORT INFORMATION
  Report Type: Spontaneous
  Country: US (occurrence: US)
  Receive Date: 20130107
  Receipt Date: 20130107
  Transmission Date: 20140127
  Serious: Yes (Death)
  Sender: FDA-Public Use
  Company Number: PHEH2012US025723

PATIENT
  Age: 88 Year
  Sex: Female

DRUGS (12)
  1. GLEEVEC [Suspect]
     Indication: COLON CANCER
     Dosage: 400 MG, QD
     Route: 048
     Dates: start: 20100820
  2. TRAMADOL [Concomitant]
     Dosage: UNK UKN, UNK
  3. SPIRIVA [Concomitant]
     Dosage: UNK UKN, UNK
  4. LOMOTIL [Concomitant]
     Dosage: UNK UKN, UNK
  5. VENTOLIN [Concomitant]
     Dosage: UNK UKN, UNK
  6. POTASSIUM CHLORIDE [Concomitant]
     Dosage: UNK UKN, UNK
  7. FLUTICASONE [Concomitant]
     Dosage: UNK UKN, UNK
  8. DIAZEPAM [Concomitant]
     Dosage: UNK UKN, UNK
  9. OXYBUTYNIN [Concomitant]
     Dosage: UNK UKN, UNK
  10. MEGESTROL [Concomitant]
     Dosage: UNK UKN, UNK
  11. TRAZODONE [Concomitant]
     Dosage: UNK UKN, UNK
  12. LASIX [Concomitant]
     Dosage: UNK UKN, UNK

REACTIONS (1)
  - Death [Fatal]
